FAERS Safety Report 18341702 (Version 3)
Quarter: 2021Q2

REPORT INFORMATION
  Report Type: Report from Study
  Country: JP (occurrence: JP)
  Receive Date: 20201005
  Receipt Date: 20210610
  Transmission Date: 20210717
  Serious: Yes (Hospitalization, Other)
  Sender: FDA-Public Use
  Company Number: JP-CELLTRION INC.-2020JP024602

PATIENT

DRUGS (8)
  1. MESALAZINE [Concomitant]
     Active Substance: MESALAMINE
     Dosage: 3000 MG/DAY
     Route: 048
  2. MIZORIBINE [Concomitant]
     Active Substance: MIZORIBINE
     Dosage: 150 MG/DAY
     Route: 048
  3. CT?P13 [Suspect]
     Active Substance: INFLIXIMAB-DYYB
     Dosage: 680 MILLIGRAM (WEIGHT 67.8 KG)
     Dates: start: 20190411, end: 20190411
  4. CT?P13 [Suspect]
     Active Substance: INFLIXIMAB-DYYB
     Indication: CROHN^S DISEASE
     Dosage: 600 MG
     Route: 041
     Dates: start: 20181016, end: 20201006
  5. CT?P13 [Suspect]
     Active Substance: INFLIXIMAB-DYYB
     Dosage: 680 MILLIGRAM (WEIGHT 67.8KG)
     Route: 041
     Dates: start: 20181224, end: 20181224
  6. CT?P13 [Suspect]
     Active Substance: INFLIXIMAB-DYYB
     Dosage: 680 MILLIGRAM (WEIGHT 68.2 KG)
     Route: 041
     Dates: start: 20190212, end: 20190212
  7. CT?P13 [Suspect]
     Active Substance: INFLIXIMAB-DYYB
     Dosage: 670 MILLIGRAM
     Route: 041
     Dates: start: 20190924, end: 20190924
  8. CT?P13 [Suspect]
     Active Substance: INFLIXIMAB-DYYB
     Dosage: 660 MILLIGRAM
     Route: 041
     Dates: start: 20201006, end: 20201006

REACTIONS (13)
  - Meniere^s disease [Not Recovered/Not Resolved]
  - Hypokalaemia [Not Recovered/Not Resolved]
  - Off label use [Unknown]
  - Migraine [Not Recovered/Not Resolved]
  - Rash [Not Recovered/Not Resolved]
  - Herpes zoster [Recovered/Resolved]
  - Muscle tightness [Not Recovered/Not Resolved]
  - Gastroenteritis [Recovered/Resolved]
  - Insomnia [Not Recovered/Not Resolved]
  - Gastrooesophageal reflux disease [Not Recovered/Not Resolved]
  - Nasopharyngitis [Recovered/Resolved]
  - Overdose [Unknown]
  - Seasonal allergy [Not Recovered/Not Resolved]

NARRATIVE: CASE EVENT DATE: 20181203
